FAERS Safety Report 9147758 (Version 3)
Quarter: 2013Q3

REPORT INFORMATION
  Report Type: Spontaneous
  Country: JP (occurrence: JP)
  Receive Date: 20130307
  Receipt Date: 20130826
  Transmission Date: 20140515
  Serious: Yes (Death, Hospitalization, Other)
  Sender: FDA-Public Use
  Company Number: JP-ELI_LILLY_AND_COMPANY-JP201211003039

PATIENT
  Age: 70 Year
  Sex: Male
  Weight: 64 kg

DRUGS (6)
  1. ALIMTA [Suspect]
     Indication: NON-SMALL CELL LUNG CANCER STAGE IV
     Dosage: 500 MG/M2
     Route: 042
     Dates: start: 20091009, end: 20091102
  2. PANVITAN [Concomitant]
     Dosage: 1 G, QD
     Route: 048
     Dates: start: 20090926, end: 20091109
  3. FRESMIN S [Concomitant]
     Dosage: 1 MG, QD
     Route: 030
     Dates: start: 20090926
  4. DECADRAN [Concomitant]
     Dosage: 1 MG, QD
     Route: 048
     Dates: start: 20090508, end: 20091109
  5. FLORINEF [Concomitant]
     Dosage: 0.1 G, QD
     Route: 048
     Dates: start: 20090623, end: 20091109
  6. SELBEX [Concomitant]
     Dosage: 50 MG, QD
     Route: 048
     Dates: start: 20090508, end: 20091109

REACTIONS (4)
  - Acute respiratory distress syndrome [Fatal]
  - Interstitial lung disease [Fatal]
  - Cerebral infarction [Not Recovered/Not Resolved]
  - Platelet count decreased [Unknown]
